FAERS Safety Report 17893413 (Version 1)
Quarter: 2020Q2

REPORT INFORMATION
  Report Type: Spontaneous
  Country: GB (occurrence: GB)
  Receive Date: 20200615
  Receipt Date: 20200615
  Transmission Date: 20200714
  Serious: Yes (Other)
  Sender: FDA-Public Use
  Company Number: GB-AMGEN-GBRSP2020093644

PATIENT
  Age: 76 Year
  Sex: Male
  Weight: 75.5 kg

DRUGS (14)
  1. OMEPRAZOLE. [Concomitant]
     Active Substance: OMEPRAZOLE
  2. PARACETAMOL [Concomitant]
     Active Substance: ACETAMINOPHEN
  3. PANITUMUMAB [Suspect]
     Active Substance: PANITUMUMAB
     Indication: GASTROINTESTINAL CANCER METASTATIC
     Dosage: 440 MILLIGRAM, Q2WK
     Route: 042
     Dates: start: 20200220, end: 20200401
  4. ONDANSETRON [Concomitant]
     Active Substance: ONDANSETRON
  5. DOXAZOSIN [Concomitant]
     Active Substance: DOXAZOSIN MESYLATE
  6. 5 FLUOROURACIL [FLUOROURACIL] [Concomitant]
     Active Substance: FLUOROURACIL
  7. DOMPERIDONE [Concomitant]
     Active Substance: DOMPERIDONE
  8. ALLIUM SATIVUM [Concomitant]
     Active Substance: GARLIC
  9. OXALIPLATIN. [Concomitant]
     Active Substance: OXALIPLATIN
  10. DEXAMETHASONE. [Concomitant]
     Active Substance: DEXAMETHASONE
  11. COAPROVEL [Concomitant]
     Active Substance: HYDROCHLOROTHIAZIDE\IRBESARTAN
  12. AMLODIPINE [Concomitant]
     Active Substance: AMLODIPINE BESYLATE
  13. CALCIUM FOLINATE [Concomitant]
     Active Substance: LEUCOVORIN CALCIUM
  14. CARVEDILOL. [Concomitant]
     Active Substance: CARVEDILOL

REACTIONS (1)
  - Acute kidney injury [Recovered/Resolved with Sequelae]

NARRATIVE: CASE EVENT DATE: 20200413
